FAERS Safety Report 17389744 (Version 7)
Quarter: 2020Q3

REPORT INFORMATION
  Report Type: Report from Study
  Country: US (occurrence: US)
  Receive Date: 20200207
  Receipt Date: 20200721
  Transmission Date: 20201102
  Serious: Yes (Hospitalization)
  Sender: FDA-Public Use
  Company Number: NVSC2020US005202

PATIENT
  Age: 16 Year
  Sex: Female
  Weight: 75.7 kg

DRUGS (23)
  1. OXCARBAZEPINE. [Suspect]
     Active Substance: OXCARBAZEPINE
     Dosage: 600 MG, BID
     Route: 048
     Dates: start: 20200114
  2. BACTRIM DS [Concomitant]
     Active Substance: SULFAMETHOXAZOLE\TRIMETHOPRIM
     Indication: SINUSITIS
     Dosage: 800/160MG, BID
     Route: 048
     Dates: start: 20191220
  3. GABAPENTIN. [Concomitant]
     Active Substance: GABAPENTIN
     Indication: FACIAL PAIN
     Dosage: 300 MG, TID
     Route: 048
     Dates: start: 20180209, end: 20200127
  4. CDZ173 [Suspect]
     Active Substance: LENIOLISIB PHOSPHATE
     Indication: LYMPHADENOPATHY
     Dosage: 70 MG, BID
     Route: 048
     Dates: start: 20181227
  5. AUGMENTIN [Concomitant]
     Active Substance: AMOXICILLIN\CLAVULANATE POTASSIUM
     Indication: SINUSITIS
     Dosage: 875/125, 1 TAB BID
     Route: 048
     Dates: start: 20191209, end: 20191219
  6. CETRIZINE [Concomitant]
     Active Substance: CETIRIZINE HYDROCHLORIDE
     Indication: RHINITIS ALLERGIC
     Dosage: 10 MG, QD
     Route: 048
     Dates: start: 20160726
  7. CYCLOBENZAPRINE. [Concomitant]
     Active Substance: CYCLOBENZAPRINE
     Indication: HEADACHE
     Dosage: 5 MG, PRN
     Route: 048
     Dates: start: 20171121
  8. OXCARBAZEPINE. [Suspect]
     Active Substance: OXCARBAZEPINE
     Indication: FACIAL NEURALGIA
     Dosage: 300 MG, BID
     Route: 048
     Dates: start: 20200109
  9. OXCARBAZEPINE. [Suspect]
     Active Substance: OXCARBAZEPINE
     Dosage: 300 MG DAILY?HS
     Route: 048
     Dates: start: 20200112
  10. BUDESONIDE. [Concomitant]
     Active Substance: BUDESONIDE
     Indication: EOSINOPHILIC OESOPHAGITIS
     Dosage: 2 MG, QD
     Route: 048
     Dates: start: 20200201
  11. GABAPENTIN. [Concomitant]
     Active Substance: GABAPENTIN
     Indication: NEURALGIA
     Dosage: 300 MG, QD
     Route: 048
     Dates: start: 20200114
  12. PANTOPRAZOLE [Suspect]
     Active Substance: PANTOPRAZOLE
     Indication: PRODUCT USED FOR UNKNOWN INDICATION
     Dosage: 40 MG, BID
     Route: 048
     Dates: start: 20170926
  13. DILAUDID [Suspect]
     Active Substance: HYDROMORPHONE HYDROCHLORIDE
     Indication: FACIAL PAIN
     Dosage: 2 MG, PRN, Q3H
     Route: 048
     Dates: start: 20200114
  14. PEPCID [Concomitant]
     Active Substance: FAMOTIDINE
     Indication: EOSINOPHILIC OESOPHAGITIS
     Dosage: 600 MG, BID
     Route: 048
     Dates: start: 20200201
  15. PREDNISONE. [Concomitant]
     Active Substance: PREDNISONE
     Indication: SINUSITIS
     Dosage: 10 MG, QD
     Route: 048
     Dates: start: 20191215, end: 20191220
  16. IMITREX [Concomitant]
     Active Substance: SUMATRIPTAN SUCCINATE
     Indication: MIGRAINE
     Dosage: ONE TIME DOSE
     Route: 065
  17. BENADRYL [Concomitant]
     Active Substance: DIPHENHYDRAMINE HYDROCHLORIDE
     Indication: INSOMNIA
     Dosage: 10 MG, PRN
     Route: 048
     Dates: start: 20160726
  18. BACTRIM DS [Concomitant]
     Active Substance: SULFAMETHOXAZOLE\TRIMETHOPRIM
     Dosage: 800/160MG, BID
     Route: 048
     Dates: start: 20200106
  19. ONDANSETRON [Suspect]
     Active Substance: ONDANSETRON
     Indication: PRODUCT USED FOR UNKNOWN INDICATION
     Dosage: 8 MG, PRN
     Route: 048
     Dates: start: 20171121
  20. CDZ173 [Suspect]
     Active Substance: LENIOLISIB PHOSPHATE
     Indication: IMMUNODEFICIENCY
  21. NEILMED SINUS RINSE [Concomitant]
     Active Substance: SODIUM BICARBONATE\SODIUM CHLORIDE
     Indication: SINUSITIS
     Dosage: ONE PACKET 4X/DAY
     Route: 065
     Dates: start: 20200112
  22. BACTROBAN [Concomitant]
     Active Substance: MUPIROCIN\MUPIROCIN CALCIUM
     Indication: SINUSITIS
     Dosage: APPLICATION INTRANASAL BID
     Route: 065
     Dates: start: 20181220
  23. RANITIDINE. [Suspect]
     Active Substance: RANITIDINE
     Indication: GASTROOESOPHAGEAL REFLUX DISEASE
     Dosage: 150 MG, QD
     Route: 048
     Dates: start: 20161021

REACTIONS (8)
  - Parotitis [Recovered/Resolved]
  - Abdominal pain [Recovered/Resolved]
  - Sinusitis [Recovered/Resolved]
  - Acute sinusitis [Recovered/Resolved]
  - Dehydration [Recovered/Resolved]
  - Facial pain [Recovered/Resolved]
  - Periorbital cellulitis [Recovered/Resolved]
  - Vomiting [Recovered/Resolved]

NARRATIVE: CASE EVENT DATE: 20191222
